FAERS Safety Report 14764437 (Version 1)
Quarter: 2018Q2

REPORT INFORMATION
  Report Type: Spontaneous
  Country: US (occurrence: US)
  Receive Date: 20180410
  Receipt Date: 20180410
  Transmission Date: 20180711
  Serious: No
  Sender: FDA-Public Use
  Company Number: None

PATIENT
  Age: 16 Year
  Sex: Female
  Weight: 46.35 kg

DRUGS (1)
  1. METHYLPHENIDATE HYDROCHLORIDE. [Suspect]
     Active Substance: METHYLPHENIDATE HYDROCHLORIDE
     Indication: ATTENTION DEFICIT/HYPERACTIVITY DISORDER
     Dosage: ?          QUANTITY:1 TABLET(S);?
     Route: 048
     Dates: start: 20171130, end: 20180316

REACTIONS (13)
  - Family stress [None]
  - Product substitution issue [None]
  - Initial insomnia [None]
  - Hypoaesthesia [None]
  - Drug ineffective [None]
  - Decreased appetite [None]
  - Product physical issue [None]
  - Educational problem [None]
  - Anxiety [None]
  - Weight decreased [None]
  - Fatigue [None]
  - Irritability [None]
  - Headache [None]

NARRATIVE: CASE EVENT DATE: 20180301
